FAERS Safety Report 8582301-9 (Version None)
Quarter: 2012Q3

REPORT INFORMATION
  Report Type: 
  Country: None (occurrence: None)
  Receive Date: 20120809
  Receipt Date: 20120803
  Transmission Date: 20120928
  Serious: Yes (Hospitalization, Other)
  Sender: FDA-Public Use
  Company Number: PHHY2012BR058358

PATIENT
  Sex: Female

DRUGS (4)
  1. ADDERA D3 [Concomitant]
     Indication: VITAMIN D DEFICIENCY
     Dosage: 5 GTT, DAILY
     Route: 048
  2. ESLOUCAR [Concomitant]
     Dosage: 1 DF, (EVERY ALTERNATE DAY)
     Route: 048
  3. AMLODOPINE BESYLATE AND VALSARTAN [Suspect]
     Indication: HYPERTENSION
     Dosage: 1 DF,  DAILY (320 MG VALS AND 5 MG AMLO)
     Route: 048
  4. DIOVAN [Suspect]

REACTIONS (6)
  - LIMB INJURY [None]
  - ERYTHEMA [None]
  - MUSCLE STRAIN [None]
  - SKIN DISORDER [None]
  - OEDEMA PERIPHERAL [None]
  - BLOOD PRESSURE INCREASED [None]
